FAERS Safety Report 15570477 (Version 3)
Quarter: 2018Q4

REPORT INFORMATION
  Report Type: Spontaneous
  Country: BG (occurrence: BG)
  Receive Date: 20181031
  Receipt Date: 20181211
  Transmission Date: 20190205
  Serious: Yes (Hospitalization, Other)
  Sender: FDA-Public Use
  Company Number: BG-JNJFOC-20181038292

PATIENT
  Age: 41 Year
  Sex: Male

DRUGS (2)
  1. XARELTO [Suspect]
     Active Substance: RIVAROXABAN
     Indication: PULMONARY EMBOLISM
     Route: 048
     Dates: start: 2014, end: 20180904
  2. SORBIFER [Concomitant]
     Active Substance: FERROUS SULFATE
     Indication: ANAEMIA
     Route: 065
     Dates: start: 201808

REACTIONS (36)
  - Intracranial pressure increased [Unknown]
  - Aphasia [Recovered/Resolved]
  - Confusional state [Unknown]
  - Headache [Unknown]
  - Hemiparesis [Unknown]
  - Haemodynamic instability [Recovered/Resolved]
  - Dysarthria [Unknown]
  - Anxiety [Unknown]
  - Anaemia [Recovered/Resolved]
  - Somnolence [Unknown]
  - Vomiting [Unknown]
  - Cerebral infarction [Recovered/Resolved]
  - Rectal polypectomy [Recovered/Resolved]
  - Cholecystitis chronic [Unknown]
  - Cerebral haemorrhage [Unknown]
  - Cardiac failure [Recovered/Resolved]
  - Respiration abnormal [Unknown]
  - Heart rate abnormal [Recovered/Resolved]
  - General physical health deterioration [Recovered/Resolved]
  - Cerebral disorder [Unknown]
  - Meningism [Unknown]
  - Cerebral ischaemia [Unknown]
  - Respiratory failure [Recovered/Resolved]
  - Coma [Unknown]
  - Cerebral vasoconstriction [Unknown]
  - Brain compression [Unknown]
  - Brain oedema [Unknown]
  - Brain compression [Recovered/Resolved]
  - Rectal haemorrhage [Unknown]
  - Blood pressure systolic decreased [Recovered/Resolved]
  - Helplessness [Unknown]
  - Haemorrhoids [Recovered/Resolved]
  - Transverse sinus thrombosis [Unknown]
  - Nausea [Unknown]
  - Extrapyramidal disorder [Unknown]
  - Cholelithiasis [Unknown]

NARRATIVE: CASE EVENT DATE: 201706
